FAERS Safety Report 6102428-0 (Version None)
Quarter: 2009Q1

REPORT INFORMATION
  Report Type: 
  Country: None (occurrence: None)
  Receive Date: 20090304
  Receipt Date: 20090227
  Transmission Date: 20090719
  Serious: Yes (Other)
  Sender: FDA-Public Use
  Company Number: JP-AVENTIS-200910562JP

PATIENT

DRUGS (2)
  1. TAXOTERE [Suspect]
     Route: 041
  2. HERCEPTIN [Concomitant]

REACTIONS (1)
  - LEUKOENCEPHALOPATHY [None]
